FAERS Safety Report 4535178-2 (Version None)
Quarter: 2004Q4

REPORT INFORMATION
  Report Type: 
  Country: None (occurrence: None)
  Receive Date: 20041222
  Receipt Date: 20041216
  Transmission Date: 20050328
  Serious: Yes (Other)
  Sender: FDA-Public Use
  Company Number: US-MERCK-0412USA02136

PATIENT
  Sex: Female

DRUGS (1)
  1. VIOXX [Suspect]
     Indication: RHEUMATOID ARTHRITIS
     Route: 048

REACTIONS (1)
  - CEREBROVASCULAR ACCIDENT [None]
